FAERS Safety Report 9654433 (Version 1)
Quarter: 2013Q4

REPORT INFORMATION
  Report Type: Report from Study
  Country: US (occurrence: US)
  Receive Date: 20131029
  Receipt Date: 20131029
  Transmission Date: 20140711
  Serious: Yes (Other)
  Sender: FDA-Public Use
  Company Number: US-ROCHE-1295272

PATIENT
  Sex: 0

DRUGS (1)
  1. RITUXIMAB [Suspect]
     Indication: CHRONIC LYMPHOCYTIC LEUKAEMIA
     Route: 065

REACTIONS (6)
  - Dyspnoea [Unknown]
  - Swelling face [Unknown]
  - Oedema mouth [Unknown]
  - Renal failure acute [Unknown]
  - Infusion related reaction [Unknown]
  - Vomiting [Unknown]
